FAERS Safety Report 8058530-X (Version None)
Quarter: 2012Q1

REPORT INFORMATION
  Report Type: 
  Country: None (occurrence: None)
  Receive Date: 20120119
  Receipt Date: 20120119
  Transmission Date: 20120608
  Serious: Yes (Other)
  Sender: FDA-Public Use
  Company Number: None

PATIENT
  Age: 55 Year
  Sex: Female
  Weight: 99.7913 kg

DRUGS (2)
  1. RANITIDINE [Suspect]
     Indication: THERMAL BURN
     Dosage: TWICE DAILY ORAL
     Route: 048
  2. LACTULOSE [Suspect]
     Indication: CONSTIPATION
     Dosage: 1 TBS DAILY ORAL
     Route: 048

REACTIONS (3)
  - BLOOD TRIGLYCERIDES INCREASED [None]
  - PERIORBITAL HAEMATOMA [None]
  - CONTUSION [None]
